FAERS Safety Report 8594311-6 (Version None)
Quarter: 2012Q3

REPORT INFORMATION
  Report Type: 
  Country: None (occurrence: None)
  Receive Date: 20120815
  Receipt Date: 20120806
  Transmission Date: 20120928
  Serious: Yes (Other)
  Sender: FDA-Public Use
  Company Number: NL-BIOGENIDEC-2012BI030460

PATIENT
  Age: 55 Year
  Sex: Female

DRUGS (2)
  1. AVONEX [Suspect]
     Indication: PRODUCT USED FOR UNKNOWN INDICATION
     Route: 030
     Dates: start: 20060601, end: 20111101
  2. METHYLPREDNISOLONE [Concomitant]
     Indication: OPTIC NEURITIS
     Dates: start: 19990101, end: 20060101

REACTIONS (5)
  - MUSCLE SPASMS [None]
  - DIZZINESS [None]
  - PARAESTHESIA [None]
  - BREAST CANCER [None]
  - FATIGUE [None]
